FAERS Safety Report 16752583 (Version 1)
Quarter: 2019Q3

REPORT INFORMATION
  Report Type: Spontaneous
  Country: US (occurrence: US)
  Receive Date: 20190828
  Receipt Date: 20190828
  Transmission Date: 20191005
  Serious: Yes (Other)
  Sender: FDA-Public Use
  Company Number: US-LUNDBECK-DKLU3003140

PATIENT
  Sex: Male

DRUGS (4)
  1. ONFI [Suspect]
     Active Substance: CLOBAZAM
     Indication: SIMPLE PARTIAL SEIZURES
     Dosage: TOTAL DAILY DOSE: 40MG
     Route: 048
  2. ONFI [Suspect]
     Active Substance: CLOBAZAM
     Indication: STATUS EPILEPTICUS
  3. ONFI [Suspect]
     Active Substance: CLOBAZAM
     Indication: EPILEPSY
  4. ONFI [Suspect]
     Active Substance: CLOBAZAM
     Indication: PARTIAL SEIZURES
     Dosage: TOTAL DAILY DOSE: 40MG
     Route: 048

REACTIONS (1)
  - Seizure [Unknown]
